FAERS Safety Report 22303419 (Version 3)
Quarter: 2024Q4

REPORT INFORMATION
  Report Type: Spontaneous
  Country: US (occurrence: US)
  Receive Date: 20230510
  Receipt Date: 20241022
  Transmission Date: 20250115
  Serious: No
  Sender: SANOFI AVENTIS
  Company Number: US-SA-SAC20230509000621

PATIENT
  Age: 64 Year
  Sex: Male

DRUGS (1)
  1. DUPIXENT [Suspect]
     Active Substance: DUPILUMAB
     Dosage: 300 MG, FREQUENCY- OTHER
     Route: 058

REACTIONS (6)
  - Eye discharge [Unknown]
  - Vision blurred [Unknown]
  - Rash [Unknown]
  - Dry eye [Unknown]
  - Bronchitis [Unknown]
  - Inappropriate schedule of product administration [Unknown]
